FAERS Safety Report 6106174-9 (Version None)
Quarter: 2009Q1

REPORT INFORMATION
  Report Type: 
  Country: None (occurrence: None)
  Receive Date: 20090306
  Receipt Date: 20090224
  Transmission Date: 20090719
  Serious: Yes (Hospitalization)
  Sender: FDA-Public Use
  Company Number: US-ELI_LILLY_AND_COMPANY-US200902007732

PATIENT
  Sex: Female

DRUGS (3)
  1. CYMBALTA [Suspect]
     Indication: NEURALGIA
     Dosage: 60 MG, UNK
     Dates: start: 20081201
  2. LYRICA [Concomitant]
  3. VICODIN [Concomitant]
     Dosage: 5 MG, UNK

REACTIONS (3)
  - PAIN IN EXTREMITY [None]
  - POTENTIATING DRUG INTERACTION [None]
  - TREMOR [None]
